FAERS Safety Report 19893688 (Version 2)
Quarter: 2021Q3

REPORT INFORMATION
  Report Type: Report from Study
  Country: IT (occurrence: IT)
  Receive Date: 20210928
  Receipt Date: 20210930
  Transmission Date: 20211014
  Serious: No
  Sender: FDA-Public Use
  Company Number: IT-BRISTOL-MYERS SQUIBB COMPANY-BMS-2021-090683

PATIENT
  Age: 78 Year
  Sex: Female

DRUGS (1)
  1. ABATACEPT [Suspect]
     Active Substance: ABATACEPT
     Indication: RHEUMATOID ARTHRITIS
     Dosage: 125 MILLIGRAM, QWK
     Route: 065
     Dates: start: 20210519

REACTIONS (3)
  - Feeling abnormal [Unknown]
  - Fatigue [Unknown]
  - Confusional state [Unknown]

NARRATIVE: CASE EVENT DATE: 20210908
